FAERS Safety Report 4864650-0 (Version None)
Quarter: 2005Q4

REPORT INFORMATION
  Report Type: 
  Country: None (occurrence: None)
  Receive Date: 20051201
  Receipt Date: 20050706
  Transmission Date: 20060501
  Serious: No
  Sender: FDA-Public Use
  Company Number: 2005PV000255

PATIENT
  Age: 66 Year
  Sex: Female
  Weight: 80.7403 kg

DRUGS (9)
  1. BYETTA [Suspect]
     Indication: DIABETES MELLITUS NON-INSULIN-DEPENDENT
     Dosage: 5 MCG; BID; SC
     Route: 058
     Dates: start: 20050701
  2. METFORMIN [Concomitant]
  3. GLUCOTROL [Concomitant]
  4. NEURONTIN [Concomitant]
  5. ZOCOR [Concomitant]
  6. TOPROL-XL [Concomitant]
  7. LEVOXYL [Concomitant]
  8. PREVACID [Concomitant]
  9. MOBIC [Concomitant]

REACTIONS (3)
  - ABDOMINAL DISTENSION [None]
  - DECREASED APPETITE [None]
  - NAUSEA [None]
